FAERS Safety Report 7940183-X (Version None)
Quarter: 2011Q4

REPORT INFORMATION
  Report Type: 
  Country: None (occurrence: None)
  Receive Date: 20111125
  Receipt Date: 20111113
  Transmission Date: 20120403
  Serious: Yes (Hospitalization, Other)
  Sender: FDA-Public Use
  Company Number: PHHO2011DE018908

PATIENT
  Sex: Female
  Weight: 66 kg

DRUGS (7)
  1. BLINDED KRP203 [Suspect]
     Indication: CUTANEOUS LUPUS ERYTHEMATOSUS
     Dosage: DOUBLE BLINDED
     Route: 048
     Dates: start: 20111028, end: 20111113
  2. BLINDED NO TREATMENT RECEIVED [Suspect]
     Indication: CUTANEOUS LUPUS ERYTHEMATOSUS
     Dosage: DOUBLE BLINDED
     Route: 048
     Dates: start: 20111028, end: 20111113
  3. PANTOPRAZOLE SODIUM [Concomitant]
     Dosage: 20 MG, QD
     Route: 048
     Dates: start: 20110701
  4. BLINDED PLACEBO [Suspect]
     Indication: CUTANEOUS LUPUS ERYTHEMATOSUS
     Dosage: DOUBLE BLINDED
     Route: 048
     Dates: start: 20111028, end: 20111113
  5. BETNESOL-V [Concomitant]
     Indication: SYSTEMIC LUPUS ERYTHEMATOSUS
     Dosage: TWICE DAILY
     Dates: end: 20111101
  6. PREDNISOLONE [Suspect]
     Indication: SYSTEMIC LUPUS ERYTHEMATOSUS
     Dosage: 10 MG, QD
     Dates: start: 20110901, end: 20111113
  7. RESOCHIN [Concomitant]
     Indication: SYSTEMIC LUPUS ERYTHEMATOSUS
     Dosage: 250 MG, QD
     Dates: start: 20110501, end: 20111113

REACTIONS (1)
  - LYMPHOPENIA [None]
